FAERS Safety Report 4595332-0 (Version None)
Quarter: 2005Q1

REPORT INFORMATION
  Report Type: 
  Country: None (occurrence: None)
  Receive Date: 20050223
  Receipt Date: 20050209
  Transmission Date: 20050727
  Serious: Yes (Hospitalization)
  Sender: FDA-Public Use
  Company Number: 212333

PATIENT
  Age: 61 Year
  Sex: Female

DRUGS (3)
  1. MABTHERA (RITUXIMAB) CONC FOR SOLUTION FOR INFUSION, 100MG [Suspect]
     Dosage: INTRAVENOUS
     Route: 042
  2. HUMIRA [Suspect]
     Dosage: SEE IMAGE
     Dates: start: 20040101, end: 20040201
  3. LEFLUNOMIDE [Suspect]

REACTIONS (2)
  - HIP ARTHROPLASTY [None]
  - LUNG NEOPLASM [None]
